FAERS Safety Report 10004221 (Version 3)
Quarter: 2014Q2

REPORT INFORMATION
  Report Type: Spontaneous
  Country: US (occurrence: US)
  Receive Date: 20140312
  Receipt Date: 20140425
  Transmission Date: 20141212
  Serious: Yes (Hospitalization)
  Sender: FDA-Public Use
  Company Number: US-PFIZER INC-2014070596

PATIENT
  Age: 64 Year
  Sex: Female
  Weight: 104.31 kg

DRUGS (5)
  1. EFFEXOR XR [Suspect]
     Indication: DEPRESSION
     Dosage: 300 MG (BY TAKING TWO 150MG ORAL CAPSULE TOGETHER), 1X/DAY
     Route: 048
  2. EFFEXOR XR [Suspect]
     Dosage: 150 MG, UNK
     Route: 048
  3. BABY ASPIRIN [Suspect]
     Indication: CHEST PAIN
     Dosage: UNK
     Dates: start: 201402
  4. OXYBUTYNIN [Concomitant]
     Dosage: 10 MG, 1X/DAY
  5. SIMVASTATIN [Concomitant]
     Dosage: 20 MG, 1X/DAY

REACTIONS (3)
  - Chest pain [Unknown]
  - Palpitations [Recovered/Resolved]
  - Drug ineffective [Unknown]
